FAERS Safety Report 9729157 (Version 1)
Quarter: 2013Q4

REPORT INFORMATION
  Report Type: Spontaneous
  Country: US (occurrence: US)
  Receive Date: 20131204
  Receipt Date: 20131204
  Transmission Date: 20140711
  Serious: Yes (Other)
  Sender: FDA-Public Use
  Company Number: US-BAYER-2013-145764

PATIENT
  Age: 30 Year
  Sex: Female
  Weight: 80.73 kg

DRUGS (12)
  1. YASMIN [Suspect]
  2. OCELLA [Suspect]
  3. ACETAZOLAMIDE [Concomitant]
     Dosage: 250 MG, UNK
  4. AMITRIPTYLINE [Concomitant]
     Dosage: 25 MG, UNK
  5. LYRICA [Concomitant]
     Dosage: 150 MG, UNK
  6. TOPAMAX [Concomitant]
     Dosage: 100 MG, UNK
  7. CHANTIX [Concomitant]
  8. POLYETHYLENE GLYCOL [Concomitant]
  9. LORATADINE [Concomitant]
  10. MIRALAX [Concomitant]
  11. DARVOCET-N [Concomitant]
  12. MEDROL [Concomitant]

REACTIONS (1)
  - Deep vein thrombosis [None]
